FAERS Safety Report 6462205-8 (Version None)
Quarter: 2009Q4

REPORT INFORMATION
  Report Type: 
  Country: None (occurrence: None)
  Receive Date: 20091130
  Receipt Date: 20091118
  Transmission Date: 20100525
  Serious: Yes (Hospitalization)
  Sender: FDA-Public Use
  Company Number: US-TEVA-215637USA

PATIENT
  Sex: Female

DRUGS (5)
  1. FLUCONAZOLE TABLETS, 50MG, 100MG, 150MG, 200MG [Suspect]
     Indication: FUNGAL OESOPHAGITIS
     Route: 048
     Dates: start: 20090904
  2. FLUCONAZOLE [Suspect]
     Indication: FUNGAL OESOPHAGITIS
     Route: 048
  3. LEVOTHYROXINE SODIUM [Concomitant]
     Indication: THYROIDECTOMY
  4. FUROSEMIDE [Concomitant]
  5. OLMESARTAN MEDOXOMIL [Concomitant]
     Indication: HYPERTENSION

REACTIONS (9)
  - ASTHENIA [None]
  - BLOOD GLUCOSE INCREASED [None]
  - BLOOD THYROID STIMULATING HORMONE INCREASED [None]
  - HYPERTENSION [None]
  - LOSS OF CONSCIOUSNESS [None]
  - NERVOUSNESS [None]
  - SOMNOLENCE [None]
  - SPEECH DISORDER [None]
  - WEIGHT DECREASED [None]
